FAERS Safety Report 8431204-9 (Version None)
Quarter: 2012Q2

REPORT INFORMATION
  Report Type: 
  Country: None (occurrence: None)
  Receive Date: 20120612
  Receipt Date: 20120608
  Transmission Date: 20120825
  Serious: Yes (Disabling, Other)
  Sender: FDA-Public Use
  Company Number: PHHY2012GB049248

PATIENT
  Age: 76 Year
  Sex: Female
  Weight: 70 kg

DRUGS (5)
  1. MOTENS [Concomitant]
     Dates: start: 20120202
  2. LACRI-LUBE [Concomitant]
     Dates: start: 20120315, end: 20120320
  3. ACETAMINOPHEN [Concomitant]
     Dates: start: 20120229, end: 20120329
  4. LISINOPRIL [Suspect]
     Dosage: 5 MG, QD
  5. TEARS NATURALE [Concomitant]
     Dates: start: 20120229, end: 20120412

REACTIONS (4)
  - DIZZINESS [None]
  - SENSATION OF HEAVINESS [None]
  - LETHARGY [None]
  - FATIGUE [None]
